FAERS Safety Report 25862459 (Version 2)
Quarter: 2025Q4

REPORT INFORMATION
  Report Type: Spontaneous
  Country: US (occurrence: US)
  Receive Date: 20250930
  Receipt Date: 20251010
  Transmission Date: 20260118
  Serious: Yes (Life-Threatening, Hospitalization)
  Sender: TEVA
  Company Number: US-TEVA-VS-3375322

PATIENT
  Age: 60 Year
  Sex: Male

DRUGS (2)
  1. IRINOTECAN [Suspect]
     Active Substance: IRINOTECAN
     Indication: Product used for unknown indication
     Route: 065
  2. METYRAPONE [Suspect]
     Active Substance: METYRAPONE
     Indication: Product used for unknown indication
     Route: 065

REACTIONS (2)
  - Rebound effect [Recovered/Resolved]
  - Cortisol increased [Recovered/Resolved]
